FAERS Safety Report 13590772 (Version 1)
Quarter: 2017Q2

REPORT INFORMATION
  Report Type: Spontaneous
  Country: US (occurrence: US)
  Receive Date: 20170527
  Receipt Date: 20170527
  Transmission Date: 20170830
  Serious: No
  Sender: FDA-Public Use
  Company Number: None

PATIENT
  Age: 42 Year
  Sex: Female

DRUGS (1)
  1. REBIF REBIDOSE [Suspect]
     Active Substance: INTERFERON BETA-1A

REACTIONS (10)
  - Paraesthesia [None]
  - Abdominal pain [None]
  - Gait disturbance [None]
  - Temperature intolerance [None]
  - Headache [None]
  - Depression [None]
  - Hypoaesthesia [None]
  - Diarrhoea [None]
  - Fatigue [None]
  - Weight decreased [None]

NARRATIVE: CASE EVENT DATE: 20170525
